FAERS Safety Report 8561307 (Version 2)
Quarter: 2013Q4

REPORT INFORMATION
  Report Type: Spontaneous
  Country: US (occurrence: US)
  Receive Date: 20120514
  Receipt Date: 20131016
  Transmission Date: 20140711
  Serious: Yes (Hospitalization)
  Sender: FDA-Public Use
  Company Number: US-BAYER-2012-046334

PATIENT
  Age: 28 Year
  Sex: Female
  Weight: 41.7 kg

DRUGS (7)
  1. YASMIN [Suspect]
  2. YAZ [Suspect]
  3. FERROUS SULFATE [Concomitant]
  4. LORTAB [Concomitant]
  5. PROTONIX [Concomitant]
  6. MEDROL [Concomitant]
  7. VENOFER [Concomitant]

REACTIONS (3)
  - Pulmonary embolism [None]
  - Pulmonary infarction [None]
  - Pelvic venous thrombosis [None]
